FAERS Safety Report 12346718 (Version 2)
Quarter: 2016Q2

REPORT INFORMATION
  Report Type: Spontaneous
  Country: SE (occurrence: SE)
  Receive Date: 20160509
  Receipt Date: 20160518
  Transmission Date: 20160815
  Serious: Yes (Hospitalization, Other)
  Sender: FDA-Public Use
  Company Number: SE-SHIRE-SE201605228

PATIENT
  Age: 1 Day
  Sex: Female

DRUGS (3)
  1. MEZAVANT [Suspect]
     Active Substance: MESALAMINE
     Indication: CROHN^S DISEASE
     Dosage: 2400 MG, 1X/DAY:QD
     Route: 064
     Dates: start: 2015, end: 2016
  2. SCHERIPROCT                        /00212301/ [Concomitant]
     Dosage: UNK, AS REQ^D
     Route: 050
     Dates: start: 2015
  3. SCHERIPROCT                        /00212301/ [Concomitant]
     Indication: PRODUCT USED FOR UNKNOWN INDICATION
     Dosage: UNK, AS REQ^D
     Route: 054
     Dates: start: 2015

REACTIONS (3)
  - Hyperbilirubinaemia [Recovered/Resolved]
  - Haemolytic anaemia [Recovered/Resolved]
  - Foetal exposure during pregnancy [Recovered/Resolved]

NARRATIVE: CASE EVENT DATE: 2015
